FAERS Safety Report 12496782 (Version 1)
Quarter: 2016Q2

REPORT INFORMATION
  Report Type: Spontaneous
  Country: US (occurrence: US)
  Receive Date: 20160624
  Receipt Date: 20160624
  Transmission Date: 20160815
  Serious: No
  Sender: FDA-Public Use
  Company Number: US-TEVA-669489USA

PATIENT
  Age: 61 Year
  Sex: Female

DRUGS (1)
  1. ESTROGEN [Suspect]
     Active Substance: ESTRONE\SUS SCROFA OVARY
     Route: 065

REACTIONS (2)
  - Thyroid disorder [Unknown]
  - Blood glucose increased [Unknown]
